FAERS Safety Report 13096604 (Version 1)
Quarter: 2017Q1

REPORT INFORMATION
  Report Type: Report from Study
  Country: US (occurrence: US)
  Receive Date: 20170109
  Receipt Date: 20170109
  Transmission Date: 20170428
  Serious: Yes (Death, Other)
  Sender: FDA-Public Use
  Company Number: US-BRISTOL-MYERS SQUIBB COMPANY-BMS-2016-112190

PATIENT
  Age: 73 Year
  Sex: Female
  Weight: 78.9 kg

DRUGS (3)
  1. CYTARABINE. [Suspect]
     Active Substance: CYTARABINE
     Indication: ACUTE MYELOID LEUKAEMIA
     Dosage: 11220 MG, TOTAL
     Route: 065
     Dates: start: 20161124, end: 20161128
  2. PRAVASTATIN SODIUM. [Suspect]
     Active Substance: PRAVASTATIN SODIUM
     Indication: ACUTE MYELOID LEUKAEMIA
     Dosage: 10240 MG, TOTAL
     Route: 065
     Dates: start: 20161121, end: 20161128
  3. IDARUBICIN [Suspect]
     Active Substance: IDARUBICIN
     Indication: ACUTE MYELOID LEUKAEMIA
     Dosage: 66 MG, TOTAL
     Route: 065
     Dates: start: 20161124, end: 20161126

REACTIONS (1)
  - Cardiac arrest [Fatal]
